FAERS Safety Report 9384342 (Version 24)
Quarter: 2014Q3

REPORT INFORMATION
  Report Type: Report from Study
  Country: CA (occurrence: CA)
  Receive Date: 20130705
  Receipt Date: 20140929
  Transmission Date: 20150326
  Serious: Yes (Hospitalization, Other)
  Sender: FDA-Public Use
  Company Number: PHHY2013CA069690

PATIENT
  Age: 55 Year
  Sex: Male

DRUGS (21)
  1. SANDOSTATIN LAR DEPOT [Suspect]
     Active Substance: OCTREOTIDE ACETATE
     Dosage: 30 MG, EVERY 4 WEEKS
     Route: 030
     Dates: start: 20140530
  2. SANDOSTATIN LAR DEPOT [Suspect]
     Active Substance: OCTREOTIDE ACETATE
     Dosage: 20 MG, EVERY 4 WEEKS
     Route: 030
  3. SANDOSTATIN LAR DEPOT [Suspect]
     Active Substance: OCTREOTIDE ACETATE
     Dosage: UNK UKN, UNK
     Route: 030
     Dates: start: 20140602
  4. SANDOSTATIN [Suspect]
     Active Substance: OCTREOTIDE ACETATE
     Dosage: 100 UG, TID
     Route: 058
  5. CAPECITABINE [Suspect]
     Active Substance: CAPECITABINE
     Dosage: 500 MG, BID
     Route: 048
  6. SANDOSTATIN LAR DEPOT [Suspect]
     Active Substance: OCTREOTIDE ACETATE
     Dosage: 40 MG, EVERY 3 WEEKS
     Route: 030
  7. SANDOSTATIN [Suspect]
     Active Substance: OCTREOTIDE ACETATE
     Dosage: UNK UKN, Q8H
  8. SANDOSTATIN [Suspect]
     Active Substance: OCTREOTIDE ACETATE
  9. SANDOSTATIN [Suspect]
     Active Substance: OCTREOTIDE ACETATE
     Dosage: 1 DF,  IN THE MORNING
     Route: 058
     Dates: start: 20140530
  10. SANDOSTATIN LAR DEPOT [Suspect]
     Active Substance: OCTREOTIDE ACETATE
     Indication: CARCINOID TUMOUR
     Dosage: 30 MG, EVERY 3 WEEKS
     Route: 030
     Dates: start: 20121220
  11. SANDOSTATIN LAR DEPOT [Suspect]
     Active Substance: OCTREOTIDE ACETATE
     Dosage: 20 MG, EVERY 4 WEEKS
     Route: 030
  12. SANDOSTATIN [Suspect]
     Active Substance: OCTREOTIDE ACETATE
     Indication: CARCINOID TUMOUR
     Dosage: UNK UKN, TID
     Route: 058
     Dates: start: 20121220
  13. SANDOSTATIN [Suspect]
     Active Substance: OCTREOTIDE ACETATE
  14. SANDOSTATIN [Suspect]
     Active Substance: OCTREOTIDE ACETATE
     Dosage: 1 DF, (1 TO 3 TIMES PER DAY)
  15. SANDOSTATIN [Suspect]
     Active Substance: OCTREOTIDE ACETATE
     Dosage: UNK UKN, 3 TIMES
     Route: 058
  16. SANDOSTATIN LAR DEPOT [Suspect]
     Active Substance: OCTREOTIDE ACETATE
     Dosage: 60 MG, EVERY 3 WEEKS
     Route: 030
  17. SANDOSTATIN [Suspect]
     Active Substance: OCTREOTIDE ACETATE
     Dosage: UNK, ONCE A DAY EVERY FEW DAYS
     Route: 058
  18. LASIX [Concomitant]
     Active Substance: FUROSEMIDE
     Dosage: 20 MG, BID
     Dates: start: 20140709
  19. SANDOSTATIN [Suspect]
     Active Substance: OCTREOTIDE ACETATE
     Dosage: UNK UKN, TID
     Route: 058
  20. LASIX [Concomitant]
     Active Substance: FUROSEMIDE
     Dosage: 20 MG, QD
  21. SANDOSTATIN LAR DEPOT [Suspect]
     Active Substance: OCTREOTIDE ACETATE
     Dosage: 60 MG, EVERY 3 WEEKS
     Route: 030

REACTIONS (47)
  - Oedema [Unknown]
  - Swelling [Recovering/Resolving]
  - Pain [Not Recovered/Not Resolved]
  - Swelling face [Unknown]
  - Hyperhidrosis [Unknown]
  - Flushing [Unknown]
  - Nausea [Unknown]
  - Pain in extremity [Unknown]
  - Rhinorrhoea [Unknown]
  - Vomiting [Unknown]
  - Peripheral swelling [Recovering/Resolving]
  - Metastases to lung [Recovering/Resolving]
  - Carcinoid crisis [Unknown]
  - Cough [Unknown]
  - Blood pressure diastolic decreased [Unknown]
  - Weight decreased [Unknown]
  - Insomnia [Unknown]
  - Abdominal pain [Unknown]
  - Asthenia [Unknown]
  - Diarrhoea [Recovering/Resolving]
  - Aortic dissection [Recovering/Resolving]
  - Application site pain [Unknown]
  - Malaise [Unknown]
  - Neoplasm [Unknown]
  - Mass [Unknown]
  - Chest pain [Recovering/Resolving]
  - Pharyngeal oedema [Unknown]
  - Feeling abnormal [Unknown]
  - Palpitations [Unknown]
  - Decreased appetite [Unknown]
  - Dyspnoea [Unknown]
  - Thrombosis [Unknown]
  - Arthralgia [Recovering/Resolving]
  - Memory impairment [Unknown]
  - Tachycardia [Recovering/Resolving]
  - Intervertebral disc protrusion [Recovering/Resolving]
  - Metastatic lymphoma [Recovering/Resolving]
  - Gait disturbance [Recovering/Resolving]
  - Chills [Unknown]
  - Pruritus [Unknown]
  - Anaphylactic reaction [Unknown]
  - Blood pressure increased [Unknown]
  - Application site bruise [Recovering/Resolving]
  - Pallor [Unknown]
  - Hypoaesthesia oral [Unknown]
  - Fatigue [Unknown]
  - Rash [Recovering/Resolving]

NARRATIVE: CASE EVENT DATE: 201304
